FAERS Safety Report 6362009-0 (Version None)
Quarter: 2009Q3

REPORT INFORMATION
  Report Type: 
  Country: None (occurrence: None)
  Receive Date: 20090918
  Receipt Date: 20090914
  Transmission Date: 20100115
  Serious: Yes (Other)
  Sender: FDA-Public Use
  Company Number: US-B.I. PHARMACEUTICALS,INC./RIDGEFIELD-2009-BP-09307PF

PATIENT
  Sex: Male
  Weight: 115.67 kg

DRUGS (14)
  1. SPIRIVA [Suspect]
     Indication: ASTHMA
     Dosage: 1 PUF
     Route: 055
     Dates: start: 20090601, end: 20090601
  2. CHANTIX [Suspect]
     Indication: SMOKING CESSATION THERAPY
     Dosage: 2 MG
     Route: 048
     Dates: start: 20081001
  3. LYRICA [Concomitant]
     Indication: DIABETIC NEUROPATHY
  4. WELLBUTRIN [Concomitant]
  5. GEODON [Concomitant]
  6. ASPIRIN [Concomitant]
  7. CLONAZEPAM [Concomitant]
  8. VYTORIN [Concomitant]
  9. RISPERIDONE [Concomitant]
  10. ACTOS [Concomitant]
  11. DEPAKOTE [Concomitant]
  12. JANUMET [Concomitant]
  13. UNSPECIFIED DIABETES MEDICINE [Concomitant]
     Indication: DIABETES MELLITUS
  14. UNSPECIFIED BIPOLAR MEDICATION [Concomitant]
     Indication: BIPOLAR DISORDER

REACTIONS (16)
  - ASTHMA [None]
  - CONFUSIONAL STATE [None]
  - CONSTIPATION [None]
  - DIARRHOEA [None]
  - FAMILY STRESS [None]
  - FEELING GUILTY [None]
  - JOINT SWELLING [None]
  - MALAISE [None]
  - OEDEMA [None]
  - OEDEMA PERIPHERAL [None]
  - POLYDIPSIA [None]
  - RASH [None]
  - SLEEP APNOEA SYNDROME [None]
  - STRESS [None]
  - SUICIDAL IDEATION [None]
  - SWELLING [None]
